FAERS Safety Report 21740968 (Version 14)
Quarter: 2024Q1

REPORT INFORMATION
  Report Type: Report from Study
  Country: GB (occurrence: GB)
  Receive Date: 20221216
  Receipt Date: 20240102
  Transmission Date: 20240410
  Serious: Yes (Death, Hospitalization, Other)
  Sender: FDA-Public Use
  Company Number: GB-ROCHE-3237177

PATIENT
  Age: 70 Year
  Sex: Male
  Weight: 77.6 kg

DRUGS (7)
  1. BEVACIZUMAB [Suspect]
     Active Substance: BEVACIZUMAB
     Indication: Hepatocellular carcinoma
     Dosage: 1100 MG
     Route: 065
     Dates: start: 20220824
  2. ATEZOLIZUMAB [Suspect]
     Active Substance: ATEZOLIZUMAB
     Indication: Hepatocellular carcinoma
     Dosage: END DATE OF MOST RECENT DOSE OF STUDY DRUG PRIOR TO AE: 03/NOV/2022 (1200 MG)
     Route: 041
     Dates: start: 20220824, end: 20221103
  3. CAPECITABINE [Concomitant]
     Active Substance: CAPECITABINE
     Indication: Neoplasm malignant
     Dosage: UNK
     Route: 048
  4. CODEINE PHOSPHATE [Concomitant]
     Active Substance: CODEINE PHOSPHATE
     Dosage: 30 MG, 3X/DAY
     Route: 065
     Dates: start: 20221024, end: 20221107
  5. LOPERAMIDE [Concomitant]
     Active Substance: LOPERAMIDE
     Dosage: 8 MG, AS NEEDED
     Route: 065
     Dates: start: 2009, end: 20230104
  6. MORPHINE SULFATE [Concomitant]
     Active Substance: MORPHINE SULFATE
     Dosage: 10 MG, AS NEEDED
     Route: 065
     Dates: start: 20221108, end: 20230104
  7. ACETAMINOPHEN [Concomitant]
     Active Substance: ACETAMINOPHEN
     Dosage: 1 G, AS NEEDED
     Route: 065
     Dates: start: 20221024, end: 20230104

REACTIONS (3)
  - Rectal haemorrhage [Fatal]
  - Gastrointestinal anastomotic leak [Recovered/Resolved]
  - Coccydynia [Unknown]

NARRATIVE: CASE EVENT DATE: 20221018
